FAERS Safety Report 13561710 (Version 3)
Quarter: 2017Q2

REPORT INFORMATION
  Report Type: Spontaneous
  Country: US (occurrence: US)
  Receive Date: 20170518
  Receipt Date: 20170616
  Transmission Date: 20170830
  Serious: Yes (Death)
  Sender: FDA-Public Use
  Company Number: US-TAIHO ONCOLOGY INC-EU-2017-00782

PATIENT
  Age: 59 Year
  Sex: Male
  Weight: 91.25 kg

DRUGS (8)
  1. PROCRIT [Concomitant]
     Active Substance: ERYTHROPOIETIN
     Dosage: Q 1 WEEK FOR 4 DOSES
     Route: 058
     Dates: start: 20170301, end: 20170320
  2. NEULASTA [Concomitant]
     Active Substance: PEGFILGRASTIM
     Route: 058
     Dates: start: 20161012, end: 20161012
  3. OXYCODONE HYDROCHLORIDE. [Concomitant]
     Active Substance: OXYCODONE HYDROCHLORIDE
     Route: 048
  4. PANTOPRAZOLE SODIUM SESQUIHYDRATE [Concomitant]
     Active Substance: PANTOPRAZOLE SODIUM
     Route: 048
     Dates: start: 2016
  5. LONSURF [Suspect]
     Active Substance: TIPIRACIL HYDROCHLORIDE\TRIFLURIDINE
     Indication: ADENOCARCINOMA OF COLON
     Dosage: COMPLETED TWO CYCLES
     Route: 048
     Dates: start: 20170209, end: 20170411
  6. DECADRON [Concomitant]
     Active Substance: DEXAMETHASONE
     Dates: end: 2017
  7. POTASSIUM CHLORIDE. [Concomitant]
     Active Substance: POTASSIUM CHLORIDE
     Route: 048
     Dates: start: 20170216
  8. XARELTO [Concomitant]
     Active Substance: RIVAROXABAN
     Route: 048
     Dates: start: 2016

REACTIONS (15)
  - Muscle atrophy [Unknown]
  - Iron deficiency anaemia [Unknown]
  - Weight decreased [Unknown]
  - Musculoskeletal pain [Unknown]
  - Asthenia [Unknown]
  - Disease progression [Fatal]
  - Ascites [Unknown]
  - Faeces pale [Unknown]
  - Oedema peripheral [Recovering/Resolving]
  - Chromaturia [Unknown]
  - Dysuria [Recovered/Resolved]
  - Fatigue [Unknown]
  - Cancer pain [Unknown]
  - Jaundice [Unknown]
  - Paraesthesia [Not Recovered/Not Resolved]

NARRATIVE: CASE EVENT DATE: 2017
